FAERS Safety Report 17892882 (Version 2)
Quarter: 2020Q3

REPORT INFORMATION
  Report Type: Spontaneous
  Country: DE (occurrence: DE)
  Receive Date: 20200613
  Receipt Date: 20200924
  Transmission Date: 20201103
  Serious: Yes (Hospitalization)
  Sender: FDA-Public Use
  Company Number: DE-DRREDDYS-GER/GER/20/0123929

PATIENT
  Age: 54 Year
  Sex: Female

DRUGS (15)
  1. ALLOPURINOL. [Concomitant]
     Active Substance: ALLOPURINOL
     Indication: PRODUCT USED FOR UNKNOWN INDICATION
     Dosage: 300 MG
  2. HERCEPTIN [Suspect]
     Active Substance: TRASTUZUMAB
     Dosage: NACH THERAPIEPLAN ZULETZT AM 07.01.2020 IM 3. ZYKLUS (ACCORDING TO THERAPY PLAN LAST ON 07.01.2020 I
  3. ATOZET 10MG/20MG [Concomitant]
     Indication: PRODUCT USED FOR UNKNOWN INDICATION
     Dosage: 20|10 MG
  4. HERCEPTIN [Suspect]
     Active Substance: TRASTUZUMAB
     Indication: PRODUCT USED FOR UNKNOWN INDICATION
  5. BISOPROLOL [Concomitant]
     Active Substance: BISOPROLOL
     Indication: PRODUCT USED FOR UNKNOWN INDICATION
     Dosage: 1.25 MG
  6. LEVOTHYROXINE SODIUM. [Concomitant]
     Active Substance: LEVOTHYROXINE SODIUM
     Indication: PRODUCT USED FOR UNKNOWN INDICATION
     Dosage: 25 MICROG, 1?0?0?0
  7. PANTOPRAZOLE [Concomitant]
     Active Substance: PANTOPRAZOLE
     Indication: PRODUCT USED FOR UNKNOWN INDICATION
     Dosage: 20 MG
  8. RAMIPRIL. [Concomitant]
     Active Substance: RAMIPRIL
     Indication: PRODUCT USED FOR UNKNOWN INDICATION
     Dosage: 1.5 MG
  9. DOCETAXEL. [Suspect]
     Active Substance: DOCETAXEL
     Dosage: NACH THERAPIEPLAN ZULETZT AM 19.12.2019 IM 2. ZYKLUS (ACCORDING TO THERAPY PLAN LAST ON 19.12.2019 I
  10. CARBOPLATIN. [Suspect]
     Active Substance: CARBOPLATIN
     Dosage: NACH THERAPIEPLAN, ZULETZT AM 09.01.2020 IM 3. ZYKLUS (ACCORDING TO THERAPY PLAN, LAST ON 09.01.2020
  11. CARBOPLATIN. [Suspect]
     Active Substance: CARBOPLATIN
     Indication: PRODUCT USED FOR UNKNOWN INDICATION
  12. PERTUZUMAB. [Suspect]
     Active Substance: PERTUZUMAB
     Dosage: NACH THERAPIEPLAN ZULETZT AM 07.01.2020 (3. ZYKLUS) (ACCORDING TO THERAPY PLAN LAST ON 07.01.2020 (3
  13. PERTUZUMAB. [Suspect]
     Active Substance: PERTUZUMAB
     Indication: PRODUCT USED FOR UNKNOWN INDICATION
  14. DOCETAXEL. [Suspect]
     Active Substance: DOCETAXEL
     Indication: PRODUCT USED FOR UNKNOWN INDICATION
  15. MONTELUKAST [Concomitant]
     Active Substance: MONTELUKAST SODIUM
     Indication: PRODUCT USED FOR UNKNOWN INDICATION
     Dosage: 10 MG

REACTIONS (4)
  - General physical health deterioration [Unknown]
  - Diarrhoea [Unknown]
  - Syncope [Unknown]
  - Decreased appetite [Unknown]
